FAERS Safety Report 5920386-6 (Version None)
Quarter: 2008Q4

REPORT INFORMATION
  Report Type: 
  Country: None (occurrence: None)
  Receive Date: 20081016
  Receipt Date: 20081009
  Transmission Date: 20090506
  Serious: Yes (Disabling, Other)
  Sender: FDA-Public Use
  Company Number: PHHY2008BR24273

PATIENT
  Sex: Female

DRUGS (1)
  1. COMBIPATCH [Suspect]
     Indication: HORMONE THERAPY
     Dosage: 50 MCG, UNK
     Dates: start: 20040101

REACTIONS (3)
  - DISABILITY [None]
  - INTERVERTEBRAL DISC PROTRUSION [None]
  - LOSS OF EMPLOYMENT [None]
